FAERS Safety Report 6562568-9 (Version None)
Quarter: 2010Q1

REPORT INFORMATION
  Report Type: 
  Country: None (occurrence: None)
  Receive Date: 20100130
  Receipt Date: 20091110
  Transmission Date: 20100710
  Serious: No
  Sender: FDA-Public Use
  Company Number: US-ABBOTT-09P-163-0608709-00

PATIENT
  Sex: Female
  Weight: 118.04 kg

DRUGS (5)
  1. HUMIRA [Suspect]
     Indication: COLITIS ULCERATIVE
     Route: 058
     Dates: start: 20070101, end: 20080101
  2. HUMIRA [Suspect]
     Indication: RHEUMATOID ARTHRITIS
     Route: 058
     Dates: start: 20080101, end: 20080101
  3. HUMIRA [Suspect]
     Route: 058
     Dates: start: 20090101, end: 20090601
  4. HUMIRA [Suspect]
     Route: 058
     Dates: start: 20090701, end: 20091101
  5. DIOVAN [Concomitant]
     Indication: HYPERTENSION

REACTIONS (4)
  - EYE DISCHARGE [None]
  - EYELID INFECTION [None]
  - NAIL PSORIASIS [None]
  - PRURITUS [None]
